FAERS Safety Report 7090654-6 (Version None)
Quarter: 2010Q4

REPORT INFORMATION
  Report Type: 
  Country: None (occurrence: None)
  Receive Date: 20101109
  Receipt Date: 20090421
  Transmission Date: 20110411
  Serious: No
  Sender: FDA-Public Use
  Company Number: US-KINGPHARMUSA00001-K200900471

PATIENT
  Sex: Male

DRUGS (2)
  1. FLECTOR [Suspect]
     Indication: PAIN IN EXTREMITY
     Dosage: 1-2 PATCHES, Q 12 HOURS PRN
     Route: 061
     Dates: start: 20090406, end: 20090401
  2. ALEVE (CAPLET) [Concomitant]
     Indication: BACK PAIN
     Dosage: UNK, PRN
     Route: 048

REACTIONS (1)
  - DRUG INEFFECTIVE [None]
